FAERS Safety Report 6255007-9 (Version None)
Quarter: 2009Q3

REPORT INFORMATION
  Report Type: 
  Country: None (occurrence: None)
  Receive Date: 20090702
  Receipt Date: 20090623
  Transmission Date: 20100115
  Serious: Yes (Death)
  Sender: FDA-Public Use
  Company Number: US-MERCK-0906USA04778

PATIENT
  Age: 62 Year
  Sex: Male

DRUGS (1)
  1. MAXALT-MLT [Suspect]
     Route: 048

REACTIONS (1)
  - DEATH [None]
